FAERS Safety Report 8533428-9 (Version None)
Quarter: 2012Q3

REPORT INFORMATION
  Report Type: 
  Country: None (occurrence: None)
  Receive Date: 20120724
  Receipt Date: 20120713
  Transmission Date: 20120928
  Serious: Yes (Other)
  Sender: FDA-Public Use
  Company Number: JP-VERTEX PHARMACEUTICALS INC.-AE-2012-010547

PATIENT
  Age: 70 Year
  Sex: Female

DRUGS (9)
  1. RIBAVIRIN [Concomitant]
     Indication: HEPATITIS C
     Route: 048
     Dates: start: 20120515, end: 20120603
  2. NATEGLINIDE [Concomitant]
     Route: 048
  3. CLARITIN REDITABS [Concomitant]
     Route: 048
  4. EPADEL [Concomitant]
     Route: 048
  5. RIBAVIRIN [Concomitant]
     Route: 048
     Dates: start: 20120604
  6. PEGINTERFERON ALFA-2B [Concomitant]
     Indication: HEPATITIS C
     Route: 058
     Dates: start: 20120515
  7. FEROTYM [Concomitant]
     Route: 048
  8. LIVALO [Concomitant]
     Route: 048
  9. TELAVIC (TELAPREVIR) [Suspect]
     Indication: HEPATITIS C
     Route: 048
     Dates: start: 20120515

REACTIONS (3)
  - RASH [None]
  - PLATELET COUNT DECREASED [None]
  - ANAEMIA [None]
